FAERS Safety Report 13389666 (Version 1)
Quarter: 2017Q1

REPORT INFORMATION
  Report Type: Spontaneous
  Country: US (occurrence: US)
  Receive Date: 20170331
  Receipt Date: 20170331
  Transmission Date: 20170429
  Serious: No
  Sender: FDA-Public Use
  Company Number: US-BEH-2017079255

PATIENT
  Age: 53 Year
  Sex: Female
  Weight: 112.2 kg

DRUGS (1)
  1. HIZENTRA [Suspect]
     Active Substance: HUMAN IMMUNOGLOBULIN G
     Indication: IMMUNODEFICIENCY
     Dosage: 14 G, QW
     Route: 058
     Dates: start: 20170203

REACTIONS (2)
  - Fatigue [Unknown]
  - Headache [Unknown]
